FAERS Safety Report 7134457-2 (Version None)
Quarter: 2010Q4

REPORT INFORMATION
  Report Type: 
  Country: None (occurrence: None)
  Receive Date: 20101130
  Receipt Date: 20101130
  Transmission Date: 20110411
  Serious: Yes (Hospitalization)
  Sender: FDA-Public Use
  Company Number: None

PATIENT
  Age: 60 Year
  Sex: Male
  Weight: 54.4316 kg

DRUGS (2)
  1. LISINOPRIL [Suspect]
     Dosage: 40 MG EVERY DAY PO
     Route: 048
     Dates: start: 20080122, end: 20101017
  2. LOSARTAN [Suspect]
     Dates: start: 20090430, end: 20101017

REACTIONS (7)
  - BLOOD CREATININE INCREASED [None]
  - BLOOD UREA INCREASED [None]
  - DEHYDRATION [None]
  - DIZZINESS [None]
  - FALL [None]
  - HYPERKALAEMIA [None]
  - PROTEIN URINE PRESENT [None]
